FAERS Safety Report 16834470 (Version 10)
Quarter: 2020Q2

REPORT INFORMATION
  Report Type: Report from Study
  Country: US (occurrence: US)
  Receive Date: 20190920
  Receipt Date: 20200615
  Transmission Date: 20200713
  Serious: Yes (Hospitalization, Other)
  Sender: FDA-Public Use
  Company Number: US-ACTELION-A-NJ2019-195648

PATIENT
  Age: 66 Year
  Sex: Male
  Weight: 74.83 kg

DRUGS (7)
  1. UPTRAVI [Suspect]
     Active Substance: SELEXIPAG
     Dosage: 400 MCG AM, 200 MCG PM
     Route: 048
  2. UPTRAVI [Suspect]
     Active Substance: SELEXIPAG
     Dosage: 400 MCG, QD
     Route: 048
  3. UPTRAVI [Suspect]
     Active Substance: SELEXIPAG
     Dosage: 200 MCG, QD
     Route: 048
  4. UPTRAVI [Suspect]
     Active Substance: SELEXIPAG
     Dosage: 200 MCG, BID
     Route: 048
     Dates: start: 20190913
  5. UPTRAVI [Suspect]
     Active Substance: SELEXIPAG
     Dosage: 200 MCG, BID
     Route: 048
  6. ADCIRCA [Concomitant]
     Active Substance: TADALAFIL
  7. UPTRAVI [Suspect]
     Active Substance: SELEXIPAG
     Indication: PULMONARY HYPERTENSION
     Dosage: 200 MCG, BID
     Route: 048

REACTIONS (23)
  - Adverse event [Unknown]
  - Faeces discoloured [Unknown]
  - Diarrhoea [Unknown]
  - Headache [Unknown]
  - Unevaluable event [Unknown]
  - Pain [Unknown]
  - Fatigue [Unknown]
  - Abdominal pain upper [Unknown]
  - Hepatic pain [Unknown]
  - Nasopharyngitis [Unknown]
  - Abdominal discomfort [Unknown]
  - Dyspnoea exertional [Unknown]
  - Malaise [Unknown]
  - Incorrect dose administered [Unknown]
  - Haematochezia [Unknown]
  - Rectal haemorrhage [Unknown]
  - Insomnia [Unknown]
  - Sensitivity to weather change [Unknown]
  - Hepatic cirrhosis [Unknown]
  - Chest pain [Unknown]
  - Blood potassium decreased [Unknown]
  - Dyspnoea [Unknown]
  - Dizziness [Unknown]

NARRATIVE: CASE EVENT DATE: 20190927
